FAERS Safety Report 8876198 (Version 1)
Quarter: 2012Q4

REPORT INFORMATION
  Report Type: 
  Country: DE (occurrence: DE)
  Receive Date: 20121023
  Receipt Date: 20121023
  Transmission Date: 20130627
  Serious: Yes (Hospitalization, Disabling, Congenital Anomaly, Other)
  Sender: FDA-Public Use
  Company Number: DE-WATSON-2012-17805

PATIENT
  Sex: Male
  Weight: 3.78 kg

DRUGS (2)
  1. CITALOPRAM HYDROBROMIDE (UNKNOWN) [Suspect]
     Indication: DEPRESSION
     Dosage: ^probably taken throughout pregnancy, but exact information not given^
     Route: 064
  2. THYROXIN [Concomitant]
     Indication: HYPOTHYROIDISM
     Dosage: ^unknown dosage, probably taken throughout pregnancy^
     Route: 064

REACTIONS (5)
  - Ventricular septal defect [Unknown]
  - Cleft lip and palate [Not Recovered/Not Resolved]
  - Atrial septal defect [Unknown]
  - Hypoglycaemia neonatal [Recovered/Resolved]
  - Neonatal respiratory distress syndrome [Recovered/Resolved]
